FAERS Safety Report 16969747 (Version 2)
Quarter: 2019Q4

REPORT INFORMATION
  Report Type: Spontaneous
  Country: FR (occurrence: FR)
  Receive Date: 20191029
  Receipt Date: 20191114
  Transmission Date: 20200122
  Serious: Yes (Hospitalization)
  Sender: FDA-Public Use
  Company Number: FR-MYLANLABS-2019M1101687

PATIENT
  Age: 69 Year
  Sex: Male
  Weight: 46.4 kg

DRUGS (4)
  1. CEFEPIME MYLAN 2 G, POUDRE POUR SOLUTION INJECTABLE [Suspect]
     Active Substance: CEFEPIME HYDROCHLORIDE
     Indication: ABDOMINAL INFECTION
     Dosage: NON RENSEIGN?E
     Route: 042
     Dates: start: 20190502
  2. FLAGYL [Suspect]
     Active Substance: METRONIDAZOLE\METRONIDAZOLE HYDROCHLORIDE
     Indication: ABDOMINAL INFECTION
     Dosage: NON RENSEIGN?E
     Route: 042
     Dates: start: 20190502
  3. CASPOFUNGIN [Suspect]
     Active Substance: CASPOFUNGIN
     Indication: ABDOMINAL INFECTION
     Dosage: NON RENSEIGN?E
     Route: 042
     Dates: start: 20190502
  4. TARGOCID [Suspect]
     Active Substance: TEICOPLANIN
     Indication: ABDOMINAL INFECTION
     Dosage: NON RENSEIGN?E
     Route: 042
     Dates: start: 20190506

REACTIONS (2)
  - Coagulation factor decreased [Not Recovered/Not Resolved]
  - Cholestasis [Not Recovered/Not Resolved]

NARRATIVE: CASE EVENT DATE: 20190507
